FAERS Safety Report 24712652 (Version 3)
Quarter: 2025Q2

REPORT INFORMATION
  Report Type: Spontaneous
  Country: US (occurrence: US)
  Receive Date: 20241209
  Receipt Date: 20250423
  Transmission Date: 20250717
  Serious: No
  Sender: IPSEN BIOPHARMACEUTICALS, INC.
  Company Number: US-IPSEN Group, Research and Development-2024-24522

PATIENT
  Sex: Male

DRUGS (5)
  1. SOMATULINE DEPOT [Suspect]
     Active Substance: LANREOTIDE ACETATE
     Indication: Neuroendocrine tumour
     Dosage: UNDER SKIN
     Route: 058
  2. SOMATULINE DEPOT [Suspect]
     Active Substance: LANREOTIDE ACETATE
     Indication: Pancreatic neuroendocrine tumour
  3. EVEROLIMUS [Suspect]
     Active Substance: EVEROLIMUS
     Indication: Product used for unknown indication
     Route: 065
  4. AFINITOR [Suspect]
     Active Substance: EVEROLIMUS
     Indication: Product used for unknown indication
     Route: 065
  5. AFINITOR [Suspect]
     Active Substance: EVEROLIMUS
     Dosage: DAILY
     Route: 065

REACTIONS (8)
  - Dizziness [Unknown]
  - Headache [Recovering/Resolving]
  - Blood glucose decreased [Unknown]
  - Blister [Unknown]
  - Insomnia [Unknown]
  - Nausea [Recovering/Resolving]
  - Rash [Recovering/Resolving]
  - Peripheral swelling [Unknown]
